FAERS Safety Report 5775238-1 (Version None)
Quarter: 2008Q2

REPORT INFORMATION
  Report Type: 
  Country: None (occurrence: None)
  Receive Date: 20080612
  Receipt Date: 20080530
  Transmission Date: 20081010
  Serious: Yes (Hospitalization, Other)
  Sender: FDA-Public Use
  Company Number: 2008S1000122

PATIENT
  Age: 81 Year
  Sex: Male

DRUGS (12)
  1. ACITRETIN [Suspect]
     Indication: PSORIASIS
     Dosage: 10 MG; QOD; PO; 25 MG; QOD; PO; 1 DF; QD; PO
     Route: 048
     Dates: start: 20061112, end: 20080102
  2. ACITRETIN [Suspect]
     Indication: PSORIASIS
     Dosage: 10 MG; QOD; PO; 25 MG; QOD; PO; 1 DF; QD; PO
     Route: 048
     Dates: start: 20061112, end: 20080102
  3. ACITRETIN [Suspect]
     Indication: PSORIASIS
     Dosage: 10 MG; QOD; PO; 25 MG; QOD; PO; 1 DF; QD; PO
     Route: 048
     Dates: start: 20080201, end: 20080513
  4. ZANEDIP [Concomitant]
  5. ASPIRIN [Concomitant]
  6. METOPROLOL [Concomitant]
  7. TORVAST [Concomitant]
  8. RAMIPRIL [Concomitant]
  9. MINITRAN [Concomitant]
  10. CARVASIN [Concomitant]
  11. NICOZID [Concomitant]
  12. PLAVIX [Concomitant]

REACTIONS (4)
  - ERYTHRODERMIC PSORIASIS [None]
  - MYOCARDIAL INFARCTION [None]
  - PRESYNCOPE [None]
  - VOMITING [None]
